FAERS Safety Report 25928638 (Version 1)
Quarter: 2025Q4

REPORT INFORMATION
  Report Type: Spontaneous
  Country: GB (occurrence: GB)
  Receive Date: 20251016
  Receipt Date: 20251016
  Transmission Date: 20260118
  Serious: Yes (Other)
  Sender: IPSEN BIOPHARMACEUTICALS, INC.
  Company Number: GB-ADVANZ PHARMA-202403002389

PATIENT
  Age: 37 Year
  Sex: Male

DRUGS (1)
  1. LANREOTIDE ACETATE [Suspect]
     Active Substance: LANREOTIDE ACETATE
     Indication: Acromegaly
     Dosage: 120 MG
     Route: 058

REACTIONS (26)
  - Lower respiratory tract infection [Unknown]
  - Spinal disorder [Unknown]
  - Rash [Unknown]
  - Malaise [Unknown]
  - Insomnia [Unknown]
  - Influenza [Recovered/Resolved]
  - Flank pain [Unknown]
  - Illness [Recovering/Resolving]
  - Nail bed bleeding [Unknown]
  - Paraesthesia [Unknown]
  - Muscular weakness [Unknown]
  - Coccydynia [Unknown]
  - Pain in extremity [Unknown]
  - Dysstasia [Unknown]
  - Skin ulcer [Unknown]
  - Hypoaesthesia [Unknown]
  - Sleep disorder [Unknown]
  - Weight increased [Unknown]
  - Hypokinesia [Unknown]
  - Muscle tightness [Unknown]
  - Muscle spasms [Unknown]
  - Mental disorder [Unknown]
  - Headache [Unknown]
  - Headache [Unknown]
  - Vomiting [Recovered/Resolved]
  - Abdominal pain upper [Unknown]

NARRATIVE: CASE EVENT DATE: 20240101
